FAERS Safety Report 8548304-5 (Version None)
Quarter: 2012Q3

REPORT INFORMATION
  Report Type: 
  Country: None (occurrence: None)
  Receive Date: 20120719
  Receipt Date: 20120719
  Transmission Date: 20120928
  Serious: Yes (Other)
  Sender: FDA-Public Use
  Company Number: None

PATIENT
  Sex: Female
  Weight: 53.978 kg

DRUGS (1)
  1. ZEOSA CHEWABLE TABLETS [Suspect]
     Dosage: 35MCG -0.4MG
     Dates: start: 20110901

REACTIONS (3)
  - METRORRHAGIA [None]
  - TREATMENT FAILURE [None]
  - PRODUCT SUBSTITUTION ISSUE [None]
